FAERS Safety Report 8356577-7 (Version None)
Quarter: 2012Q2

REPORT INFORMATION
  Report Type: 
  Country: None (occurrence: None)
  Receive Date: 20120511
  Receipt Date: 20120511
  Transmission Date: 20120825
  Serious: Yes (Hospitalization)
  Sender: FDA-Public Use
  Company Number: None

PATIENT
  Age: 66 Year
  Sex: Male

DRUGS (2)
  1. CIPROFLOXACIN [Suspect]
     Dosage: 500 MG BID PO
     Route: 048
     Dates: start: 20120113, end: 20120202
  2. VANCOMYCIN [Suspect]
     Dosage: 1.5GM BID IV
     Route: 042
     Dates: start: 20120111, end: 20120114

REACTIONS (6)
  - DECREASED APPETITE [None]
  - ASTHENIA [None]
  - TUBULOINTERSTITIAL NEPHRITIS [None]
  - RENAL FAILURE ACUTE [None]
  - RASH [None]
  - PYREXIA [None]
